FAERS Safety Report 7319018-4 (Version None)
Quarter: 2011Q1

REPORT INFORMATION
  Report Type: 
  Country: None (occurrence: None)
  Receive Date: 20110228
  Receipt Date: 20110225
  Transmission Date: 20110831
  Serious: Yes (Other)
  Sender: FDA-Public Use
  Company Number: IT-PFIZER INC-2010064762

PATIENT
  Age: 50 Year
  Sex: Male

DRUGS (2)
  1. CIALIS [Interacting]
     Indication: ERECTILE DYSFUNCTION
     Dosage: 20 MG, UNK
  2. FLUCONAZOLE [Suspect]
     Indication: ONYCHOMYCOSIS
     Dosage: 300 MG, ONCE WEEKLY

REACTIONS (2)
  - LYMPHANGITIS [None]
  - DRUG INTERACTION [None]
